FAERS Safety Report 22989846 (Version 2)
Quarter: 2023Q4

REPORT INFORMATION
  Report Type: Report from Study
  Country: US (occurrence: US)
  Receive Date: 20230927
  Receipt Date: 20231102
  Transmission Date: 20240109
  Serious: Yes (Other)
  Sender: FDA-Public Use
  Company Number: US-ABBVIE-5422925

PATIENT
  Sex: Female

DRUGS (4)
  1. SKYRIZI [Suspect]
     Active Substance: RISANKIZUMAB-RZAA
     Indication: Psoriatic arthropathy
     Route: 058
     Dates: start: 2023
  2. SKYRIZI [Suspect]
     Active Substance: RISANKIZUMAB-RZAA
     Indication: Psoriasis
     Dosage: WEEK:0
     Route: 058
     Dates: start: 20230419, end: 20230419
  3. SKYRIZI [Suspect]
     Active Substance: RISANKIZUMAB-RZAA
     Dosage: WEEK:4
     Route: 058
     Dates: start: 202305, end: 202305
  4. SKYRIZI [Suspect]
     Active Substance: RISANKIZUMAB-RZAA
     Dosage: LAST ADMINISTRATION DOSE DATE : 2023
     Route: 058
     Dates: start: 20230725

REACTIONS (7)
  - Hip arthroplasty [Not Recovered/Not Resolved]
  - Loss of personal independence in daily activities [Unknown]
  - Nasopharyngitis [Recovering/Resolving]
  - Psoriasis [Unknown]
  - Stress [Unknown]
  - Therapeutic product effect decreased [Unknown]
  - Condition aggravated [Unknown]

NARRATIVE: CASE EVENT DATE: 20230101
